FAERS Safety Report 5657671-1 (Version None)
Quarter: 2008Q1

REPORT INFORMATION
  Report Type: 
  Country: None (occurrence: None)
  Receive Date: 20080310
  Receipt Date: 20080228
  Transmission Date: 20080703
  Serious: Yes (Hospitalization)
  Sender: FDA-Public Use
  Company Number: PHNU2008DE01090

PATIENT
  Sex: Female

DRUGS (1)
  1. EXJADE [Suspect]
     Indication: HAEMOSIDEROSIS
     Dosage: 20 MG/KG, UNK
     Route: 048
     Dates: start: 20070801

REACTIONS (2)
  - BLOOD BILIRUBIN INCREASED [None]
  - GASTROENTERITIS NOROVIRUS [None]
